FAERS Safety Report 5892819-5 (Version None)
Quarter: 2008Q3

REPORT INFORMATION
  Report Type: 
  Country: None (occurrence: None)
  Receive Date: 20080922
  Receipt Date: 20080922
  Transmission Date: 20090109
  Serious: No
  Sender: FDA-Public Use
  Company Number: None

PATIENT
  Sex: Female

DRUGS (1)
  1. LUPRON DEPOT [Suspect]
     Indication: ENDOMETRIOSIS
     Dosage: 3.75 MG Q MONTH IM
     Route: 030
     Dates: start: 20080623, end: 20080724

REACTIONS (2)
  - DRUG INEFFECTIVE [None]
  - RASH [None]
